FAERS Safety Report 8927566 (Version 1)
Quarter: 2012Q4

REPORT INFORMATION
  Report Type: 
  Country: GB (occurrence: GB)
  Receive Date: 20121127
  Receipt Date: 20121127
  Transmission Date: 20130627
  Serious: Yes (Hospitalization, Other)
  Sender: FDA-Public Use
  Company Number: GB-PFIZER INC-2012293999

PATIENT
  Age: 70 Year
  Sex: Female
  Weight: 76.3 kg

DRUGS (5)
  1. GENOTROPIN [Suspect]
     Dosage: 0.7 mg, 1x/day,7 injections/week.
     Route: 058
     Dates: start: 20060104
  2. CALCICHEW [Concomitant]
     Indication: OSTEOPENIA
     Dosage: UNK
     Dates: start: 20020524
  3. THYROXINE [Concomitant]
     Indication: THYROID DISORDER
     Dosage: UNK
     Dates: start: 20060104
  4. THYROXINE [Concomitant]
     Indication: PRIMARY HYPOTHYROIDISM
  5. HYDROCORTISONE [Concomitant]
     Indication: ACTH DECREASED
     Dosage: UNK
     Dates: start: 20020615, end: 20081209

REACTIONS (1)
  - Lower respiratory tract infection [Unknown]
